FAERS Safety Report 9484655 (Version 1)
Quarter: 2013Q3

REPORT INFORMATION
  Report Type: Spontaneous
  Country: US (occurrence: US)
  Receive Date: 20130828
  Receipt Date: 20130828
  Transmission Date: 20140515
  Serious: Yes (Hospitalization, Other)
  Sender: FDA-Public Use
  Company Number: US-ABBOTT-13P-163-1136583-00

PATIENT
  Age: 57 Year
  Sex: Male
  Weight: 112.59 kg

DRUGS (11)
  1. CREON [Suspect]
     Indication: PANCREATITIS CHRONIC
     Dosage: 3 CAPSULES WITH MEALS AND 1 CAPSULE WITH SNACKS
     Dates: start: 2009
  2. DILAUDID [Concomitant]
     Indication: PAIN
  3. TRICOR [Concomitant]
     Indication: BLOOD CHOLESTEROL INCREASED
  4. METFORMIN [Concomitant]
     Indication: DIABETES MELLITUS
  5. NOVOLIN INSULIN [Concomitant]
     Indication: DIABETES MELLITUS
  6. GABAPENTIN [Concomitant]
     Indication: PRODUCT USED FOR UNKNOWN INDICATION
  7. ZOLOFT [Concomitant]
     Indication: PRODUCT USED FOR UNKNOWN INDICATION
  8. LOMOTIL [Concomitant]
     Indication: DIARRHOEA
  9. DIAZEPAM [Concomitant]
     Indication: ANXIETY
  10. CENTRUM SILVER [Concomitant]
     Indication: VITAMIN SUPPLEMENTATION
  11. FISH OIL [Concomitant]
     Indication: LIPIDS INCREASED

REACTIONS (7)
  - Rectal fissure [Recovered/Resolved]
  - Memory impairment [Not Recovered/Not Resolved]
  - Gait disturbance [Not Recovered/Not Resolved]
  - Ammonia increased [Not Recovered/Not Resolved]
  - Pancreatitis acute [Recovering/Resolving]
  - Nephrolithiasis [Recovered/Resolved]
  - Rectal tenesmus [Not Recovered/Not Resolved]
